FAERS Safety Report 7206398-3 (Version None)
Quarter: 2011Q1

REPORT INFORMATION
  Report Type: 
  Country: None (occurrence: None)
  Receive Date: 20110103
  Receipt Date: 20110103
  Transmission Date: 20110831
  Serious: Yes (Death, Hospitalization)
  Sender: FDA-Public Use
  Company Number: PHHO2008US10887

PATIENT
  Sex: Female
  Weight: 61 kg

DRUGS (2)
  1. SANDOSTATIN LAR [Suspect]
     Indication: CARCINOID TUMOUR
     Dosage: UNK
     Dates: start: 20000101
  2. AFINITOR [Suspect]
     Indication: CARCINOID TUMOUR
     Dosage: 10 MG, QD
     Dates: start: 20080115, end: 20080708

REACTIONS (7)
  - HYPOXIA [None]
  - PNEUMONIA [None]
  - NEOPLASM MALIGNANT [None]
  - DYSPNOEA [None]
  - MYCOBACTERIUM AVIUM COMPLEX INFECTION [None]
  - CARDIAC DISORDER [None]
  - MULTI-ORGAN FAILURE [None]
